FAERS Safety Report 13600825 (Version 1)
Quarter: 2017Q2

REPORT INFORMATION
  Report Type: Spontaneous
  Country: US (occurrence: US)
  Receive Date: 20170531
  Receipt Date: 20170531
  Transmission Date: 20170830
  Serious: No
  Sender: FDA-Public Use
  Company Number: None

PATIENT
  Age: 60 Year
  Sex: Female
  Weight: 68.49 kg

DRUGS (4)
  1. ENALAPRIL [Concomitant]
     Active Substance: ENALAPRIL
  2. TRESIBA [Concomitant]
     Active Substance: INSULIN DEGLUDEC
  3. GLIPIZIDE. [Concomitant]
     Active Substance: GLIPIZIDE
  4. REPATHA [Suspect]
     Active Substance: EVOLOCUMAB
     Indication: HYPERLIPIDAEMIA
     Route: 058
     Dates: start: 201604

REACTIONS (3)
  - Injection site pain [None]
  - Injection site extravasation [None]
  - Injection site discolouration [None]

NARRATIVE: CASE EVENT DATE: 20170407
